FAERS Safety Report 20660746 (Version 1)
Quarter: 2022Q1

REPORT INFORMATION
  Report Type: Spontaneous
  Country: US (occurrence: US)
  Receive Date: 20220331
  Receipt Date: 20220331
  Transmission Date: 20220423
  Serious: Yes (Life-Threatening, Hospitalization)
  Sender: FDA-Public Use
  Company Number: US-TEVA-2022-US-2021531

PATIENT
  Age: 64 Year
  Sex: Male

DRUGS (8)
  1. PROPOFOL [Suspect]
     Active Substance: PROPOFOL
     Indication: Sedative therapy
     Dosage: 45 MICROG/KG/MIN
     Route: 065
  2. QUETIAPINE [Suspect]
     Active Substance: QUETIAPINE
     Indication: Drug withdrawal maintenance therapy
     Route: 065
  3. VALPROIC ACID [Suspect]
     Active Substance: VALPROIC ACID
     Indication: Drug withdrawal maintenance therapy
     Route: 065
  4. CLONIDINE [Suspect]
     Active Substance: CLONIDINE
     Indication: Drug withdrawal maintenance therapy
     Route: 065
  5. FENTANYL [Concomitant]
     Active Substance: FENTANYL
     Indication: Sedative therapy
     Route: 065
  6. CISATRACURIUM [Concomitant]
     Active Substance: CISATRACURIUM
     Indication: Muscle relaxant therapy
     Route: 065
  7. MIDAZOLAM [Concomitant]
     Active Substance: MIDAZOLAM
     Indication: Sedative therapy
     Route: 065
  8. DEXMEDETOMIDINE [Concomitant]
     Active Substance: DEXMEDETOMIDINE
     Indication: Sedative therapy
     Route: 065

REACTIONS (6)
  - Withdrawal syndrome [Recovered/Resolved]
  - Paradoxical drug reaction [Recovered/Resolved]
  - Tachycardia [Recovered/Resolved]
  - Tachypnoea [Recovered/Resolved]
  - Hypertension [Recovered/Resolved]
  - Drug ineffective [Unknown]
